FAERS Safety Report 4521569-2 (Version None)
Quarter: 2004Q4

REPORT INFORMATION
  Report Type: 
  Country: None (occurrence: None)
  Receive Date: 20041206
  Receipt Date: 20041129
  Transmission Date: 20050328
  Serious: Yes (Death)
  Sender: FDA-Public Use
  Company Number: 2004UW24380

PATIENT
  Age: 19 Year
  Sex: Female

DRUGS (4)
  1. SEROQUEL [Suspect]
  2. RISPERDAL [Concomitant]
  3. CARBATROL [Concomitant]
  4. ZITHROMAX [Concomitant]

REACTIONS (1)
  - PULMONARY EMBOLISM [None]
